FAERS Safety Report 19261017 (Version 1)
Quarter: 2021Q2

REPORT INFORMATION
  Report Type: Spontaneous
  Country: US (occurrence: US)
  Receive Date: 20210515
  Receipt Date: 20210515
  Transmission Date: 20210717
  Serious: No
  Sender: FDA-Public Use
  Company Number: US-SA-2021SA157588

PATIENT
  Age: 71 Year
  Sex: Female

DRUGS (13)
  1. DULERA [Concomitant]
     Active Substance: FORMOTEROL FUMARATE DIHYDRATE\MOMETASONE FUROATE
     Dosage: UNK
  2. XIFAXAN [Concomitant]
     Active Substance: RIFAXIMIN
     Dosage: UNK
  3. PLAQUENIL [Concomitant]
     Active Substance: HYDROXYCHLOROQUINE SULFATE
  4. LISINOPRIL. [Concomitant]
     Active Substance: LISINOPRIL
  5. LEVOCETIRIZINE [Concomitant]
     Active Substance: LEVOCETIRIZINE
     Dosage: UNK
  6. QVAR REDIHALER [Concomitant]
     Active Substance: BECLOMETHASONE DIPROPIONATE
     Dosage: UNK
  7. ESTRADIOL. [Concomitant]
     Active Substance: ESTRADIOL
     Dosage: UNK
  8. MYRBETRIQ [Concomitant]
     Active Substance: MIRABEGRON
     Dosage: UNK
  9. PROGESTERONE. [Concomitant]
     Active Substance: PROGESTERONE
     Dosage: UNK
  10. FLUTICASONE PROPIONATE. [Concomitant]
     Active Substance: FLUTICASONE PROPIONATE
     Dosage: UNK
  11. DUPIXENT [Suspect]
     Active Substance: DUPILUMAB
     Indication: ASTHMA
     Dosage: 300 MG, QOW
     Route: 058
     Dates: start: 202012
  12. BUPROPION. [Concomitant]
     Active Substance: BUPROPION
     Dosage: UNK
  13. COLESTIPOL [Concomitant]
     Active Substance: COLESTIPOL
     Dosage: UNK

REACTIONS (4)
  - Product use issue [Unknown]
  - Inflammation [Unknown]
  - Asthma [Unknown]
  - Swelling [Unknown]

NARRATIVE: CASE EVENT DATE: 202012
